FAERS Safety Report 4562701-4 (Version None)
Quarter: 2005Q1

REPORT INFORMATION
  Report Type: 
  Country: None (occurrence: None)
  Receive Date: 20050124
  Receipt Date: 20010924
  Transmission Date: 20050727
  Serious: No
  Sender: FDA-Public Use
  Company Number: 200219026

PATIENT
  Age: 33 Year
  Sex: Female

DRUGS (1)
  1. TAZORAC [Suspect]
     Indication: PSORIASIS
     Dates: start: 20010101, end: 20010923

REACTIONS (3)
  - CAESAREAN SECTION [None]
  - DRUG EXPOSURE DURING PREGNANCY [None]
  - PREGNANCY [None]
